FAERS Safety Report 11454774 (Version 1)
Quarter: 2015Q3

REPORT INFORMATION
  Report Type: Spontaneous
  Country: US (occurrence: US)
  Receive Date: 20150831
  Receipt Date: 20150831
  Transmission Date: 20151125
  Serious: No
  Sender: FDA-Public Use
  Company Number: US-ELI_LILLY_AND_COMPANY-US201005003631

PATIENT
  Sex: Female

DRUGS (2)
  1. CYMBALTA [Suspect]
     Active Substance: DULOXETINE HYDROCHLORIDE
     Dosage: 30 MG, 2/D
     Dates: start: 201004, end: 20100505
  2. CYMBALTA [Suspect]
     Active Substance: DULOXETINE HYDROCHLORIDE
     Indication: PAIN IN EXTREMITY
     Dosage: 30 MG, DAILY (1/D)
     Dates: start: 201004, end: 201004

REACTIONS (3)
  - Constipation [Unknown]
  - Off label use [Recovered/Resolved]
  - Loss of libido [Unknown]

NARRATIVE: CASE EVENT DATE: 201004
